FAERS Safety Report 7878628-6 (Version None)
Quarter: 2011Q4

REPORT INFORMATION
  Report Type: 
  Country: None (occurrence: None)
  Receive Date: 20111014
  Receipt Date: 20110916
  Transmission Date: 20120403
  Serious: Yes (Other)
  Sender: FDA-Public Use
  Company Number: 1044097

PATIENT
  Age: 81 Year
  Sex: Female

DRUGS (6)
  1. ROCURONIUM BROMIDE [Suspect]
     Dosage: 40 MG
     Dates: start: 20110915
  2. ZOFRAN [Concomitant]
  3. PROPOFOL [Concomitant]
  4. REGLAN [Concomitant]
  5. VERSED [Concomitant]
  6. FENTANYL CITRATE [Concomitant]

REACTIONS (2)
  - DRUG EFFECT PROLONGED [None]
  - RESPIRATION ABNORMAL [None]
